FAERS Safety Report 12310671 (Version 1)
Quarter: 2016Q2

REPORT INFORMATION
  Report Type: Spontaneous
  Country: IT (occurrence: IT)
  Receive Date: 20160427
  Receipt Date: 20160427
  Transmission Date: 20160815
  Serious: Yes (Hospitalization)
  Sender: FDA-Public Use
  Company Number: IT-SA-2016SA076941

PATIENT
  Age: 62 Year
  Sex: Male

DRUGS (1)
  1. AUBAGIO [Suspect]
     Active Substance: TERIFLUNOMIDE
     Indication: MULTIPLE SCLEROSIS RELAPSE PROPHYLAXIS
     Route: 048
     Dates: start: 20160129

REACTIONS (2)
  - Cardiac flutter [Recovering/Resolving]
  - Cardiac fibrillation [Recovering/Resolving]

NARRATIVE: CASE EVENT DATE: 20160322
